FAERS Safety Report 17699960 (Version 1)
Quarter: 2020Q2

REPORT INFORMATION
  Report Type: Spontaneous
  Country: US (occurrence: US)
  Receive Date: 20200423
  Receipt Date: 20200423
  Transmission Date: 20200714
  Serious: Yes (Other)
  Sender: FDA-Public Use
  Company Number: US-ASTELLAS-2019US025276

PATIENT
  Age: 68 Year
  Sex: Female

DRUGS (4)
  1. LEXISCAN [Suspect]
     Active Substance: REGADENOSON
     Indication: SCAN MYOCARDIAL PERFUSION
     Dosage: 5 ML, TOTAL DOSE (ONE DOSE 5 ML (0.4 MG REGADENOSON))
     Route: 042
     Dates: start: 20190619, end: 20190619
  2. LEXISCAN [Suspect]
     Active Substance: REGADENOSON
     Indication: SCAN MYOCARDIAL PERFUSION
     Dosage: 5 ML, TOTAL DOSE (ONE DOSE 5 ML (0.4 MG REGADENOSON))
     Route: 042
     Dates: start: 20190619, end: 20190619
  3. LEXISCAN [Suspect]
     Active Substance: REGADENOSON
     Indication: SCAN MYOCARDIAL PERFUSION
     Dosage: 5 ML, TOTAL DOSE (ONE DOSE 5 ML (0.4 MG REGADENOSON))
     Route: 042
     Dates: start: 20190619, end: 20190619
  4. LEXISCAN [Suspect]
     Active Substance: REGADENOSON
     Indication: SCAN MYOCARDIAL PERFUSION
     Dosage: 5 ML, TOTAL DOSE (ONE DOSE 5 ML (0.4 MG REGADENOSON))
     Route: 042
     Dates: start: 20190619, end: 20190619

REACTIONS (2)
  - Cardiac arrest [Recovered/Resolved]
  - Inappropriate schedule of product administration [Unknown]

NARRATIVE: CASE EVENT DATE: 20190619
